FAERS Safety Report 7405144-8 (Version None)
Quarter: 2011Q2

REPORT INFORMATION
  Report Type: 
  Country: None (occurrence: None)
  Receive Date: 20110411
  Receipt Date: 20110405
  Transmission Date: 20111010
  Serious: Yes (Other)
  Sender: FDA-Public Use
  Company Number: US-BRISTOL-MYERS SQUIBB COMPANY-15654403

PATIENT
  Age: 83 Year
  Sex: Male
  Weight: 78 kg

DRUGS (4)
  1. COENZYME Q10 [Concomitant]
  2. K-DUR [Concomitant]
  3. LASIX [Concomitant]
  4. COUMADIN [Suspect]
     Dosage: STARTED 2002-2003. 1DF=5MG/DAY EXCEPT ON THURSDAYS

REACTIONS (3)
  - ERECTILE DYSFUNCTION [None]
  - PROTHROMBIN TIME ABNORMAL [None]
  - HEART RATE DECREASED [None]
